FAERS Safety Report 18347660 (Version 1)
Quarter: 2020Q4

REPORT INFORMATION
  Report Type: Spontaneous
  Country: FR (occurrence: FR)
  Receive Date: 20201006
  Receipt Date: 20201006
  Transmission Date: 20210114
  Serious: Yes (Hospitalization)
  Sender: FDA-Public Use
  Company Number: FR-SAMSUNG BIOEPIS-SB-2020-29954

PATIENT
  Age: 42 Year
  Sex: Male
  Weight: 91 kg

DRUGS (2)
  1. CORTANCYL [Suspect]
     Active Substance: PREDNISONE
     Indication: COLITIS
     Route: 048
     Dates: start: 20200101
  2. FLIXABI [Suspect]
     Active Substance: INFLIXIMAB
     Indication: COLITIS
     Dosage: MAMMAL/HAMSTER /CHO CELLS
     Route: 042
     Dates: start: 20200110, end: 20200110

REACTIONS (3)
  - Chest pain [Recovered/Resolved]
  - Myocarditis [Recovered/Resolved]
  - Product use in unapproved indication [Unknown]

NARRATIVE: CASE EVENT DATE: 20200114
